FAERS Safety Report 6788515-2 (Version None)
Quarter: 2010Q2

REPORT INFORMATION
  Report Type: 
  Country: None (occurrence: None)
  Receive Date: 20100623
  Receipt Date: 20080317
  Transmission Date: 20101027
  Serious: No
  Sender: FDA-Public Use
  Company Number: US-PFIZER INC-2008026111

PATIENT
  Sex: Male

DRUGS (2)
  1. SUTENT [Suspect]
     Indication: RENAL CANCER
     Route: 048
     Dates: start: 20060101
  2. DEXAMETHASONE ACETATE [Interacting]
     Indication: RENAL CANCER

REACTIONS (6)
  - ADVERSE REACTION [None]
  - DRUG INTERACTION [None]
  - PAIN [None]
  - RASH [None]
  - RASH PRURITIC [None]
  - SWELLING [None]
